FAERS Safety Report 11704519 (Version 4)
Quarter: 2016Q1

REPORT INFORMATION
  Report Type: Spontaneous
  Country: US (occurrence: US)
  Receive Date: 20151106
  Receipt Date: 20160205
  Transmission Date: 20160525
  Serious: No
  Sender: FDA-Public Use
  Company Number: US-PFIZER INC-2015370079

PATIENT
  Age: 61 Year
  Sex: Female
  Weight: 102.4 kg

DRUGS (3)
  1. IBRANCE [Suspect]
     Active Substance: PALBOCICLIB
     Dosage: 125 MG, CYCLIC (DAY 1 TO DAY 21 EVERY 28 DAYS)
     Route: 048
     Dates: start: 20151018
  2. IBRANCE [Suspect]
     Active Substance: PALBOCICLIB
     Indication: BREAST CANCER
     Dosage: 125 MG, CYCLIC (DAY 1 TO DAY 21 EVERY 28 DAYS)
     Route: 048
     Dates: start: 20151018
  3. IBRANCE [Suspect]
     Active Substance: PALBOCICLIB
     Dosage: 125 MG, CYCLIC (DAY 1 TO DAY 21 EVERY 28 DAYS)
     Route: 048
     Dates: start: 20151018

REACTIONS (10)
  - Breast cancer [Unknown]
  - Nasopharyngitis [Unknown]
  - Hepatic enzyme increased [Unknown]
  - Blood count abnormal [Unknown]
  - Abdominal pain [Unknown]
  - Constipation [Unknown]
  - Nausea [Recovering/Resolving]
  - Vomiting [Unknown]
  - Bone pain [Unknown]
  - Disease progression [Unknown]

NARRATIVE: CASE EVENT DATE: 20151028
